FAERS Safety Report 25671795 (Version 1)
Quarter: 2025Q3

REPORT INFORMATION
  Report Type: Spontaneous
  Country: EU (occurrence: EU)
  Receive Date: 20250812
  Receipt Date: 20250812
  Transmission Date: 20251020
  Serious: Yes (Other)
  Sender: PFIZER
  Company Number: None

PATIENT
  Age: 68 Year
  Sex: Female

DRUGS (2)
  1. MEDROL [Suspect]
     Active Substance: METHYLPREDNISOLONE
     Indication: Bronchitis
     Dosage: 4 MG, 2X/DAY
     Route: 048
     Dates: start: 202410, end: 202410
  2. FIDATO [Suspect]
     Active Substance: CEFTRIAXONE SODIUM
     Indication: Bronchitis bacterial
     Route: 030
     Dates: start: 202410, end: 202410

REACTIONS (4)
  - Blister [Recovered/Resolved]
  - Pruritus [Recovered/Resolved]
  - Pharyngeal oedema [Recovered/Resolved]
  - Band sensation [Recovered/Resolved]

NARRATIVE: CASE EVENT DATE: 20241001
